FAERS Safety Report 15694297 (Version 1)
Quarter: 2018Q4

REPORT INFORMATION
  Report Type: Spontaneous
  Country: US (occurrence: US)
  Receive Date: 20181206
  Receipt Date: 20181206
  Transmission Date: 20190205
  Serious: No
  Sender: FDA-Public Use
  Company Number: US-SA-2018SA331913

PATIENT
  Age: 44 Year
  Sex: Female

DRUGS (1)
  1. AUBAGIO [Suspect]
     Active Substance: TERIFLUNOMIDE
     Indication: MULTIPLE SCLEROSIS
     Dosage: 7 MG, QD
     Route: 048
     Dates: start: 201811

REACTIONS (9)
  - Sleep disorder [Unknown]
  - Sexual dysfunction [Unknown]
  - Alopecia [Unknown]
  - Muscle spasms [Unknown]
  - Depression [Unknown]
  - Fatigue [Unknown]
  - Rash pruritic [Unknown]
  - Asthenia [Unknown]
  - Crying [Unknown]
